FAERS Safety Report 20858386 (Version 4)
Quarter: 2022Q3

REPORT INFORMATION
  Report Type: Report from Study
  Country: MX (occurrence: MX)
  Receive Date: 20220521
  Receipt Date: 20220808
  Transmission Date: 20221027
  Serious: Yes (Hospitalization, Other)
  Sender: FDA-Public Use
  Company Number: MX-NOVARTISPH-NVSC2022MX116589

PATIENT
  Sex: Female

DRUGS (1)
  1. TASIGNA [Suspect]
     Active Substance: NILOTINIB
     Indication: Chronic myeloid leukaemia
     Dosage: UNK
     Route: 048

REACTIONS (12)
  - Pneumonia [Unknown]
  - Throat lesion [Unknown]
  - Oropharyngeal pain [Unknown]
  - Fear [Recovering/Resolving]
  - Crying [Recovering/Resolving]
  - Stress [Recovered/Resolved]
  - Tooth disorder [Recovering/Resolving]
  - Gastritis [Recovering/Resolving]
  - Abdominal discomfort [Recovering/Resolving]
  - Anxiety [Recovered/Resolved]
  - Insomnia [Recovered/Resolved]
  - Therapeutic response decreased [Recovering/Resolving]
